FAERS Safety Report 6304520-4 (Version None)
Quarter: 2009Q3

REPORT INFORMATION
  Report Type: 
  Country: None (occurrence: None)
  Receive Date: 20090806
  Receipt Date: 20090724
  Transmission Date: 20100115
  Serious: Yes (Other)
  Sender: FDA-Public Use
  Company Number: DEP_00276_2009

PATIENT
  Age: 83 Year
  Sex: Male

DRUGS (7)
  1. METFORMIN HCL [Suspect]
     Indication: TYPE 2 DIABETES MELLITUS
     Dosage: (850 MG 1X/12 HOURS)
  2. ACENOCUMAROL [Concomitant]
  3. DIGOXIN [Concomitant]
  4. TORSEMIDE [Concomitant]
  5. IRBESARTAN [Concomitant]
  6. ATENOLOL [Concomitant]
  7. SIMVASTATIN [Concomitant]

REACTIONS (13)
  - ADENOMA BENIGN [None]
  - ARRHYTHMIA [None]
  - ASTHENIA [None]
  - CARBOHYDRATE ANTIGEN 19-9 INCREASED [None]
  - CARDIAC MURMUR [None]
  - CHOLESTASIS [None]
  - DECREASED APPETITE [None]
  - DIARRHOEA [None]
  - FAECES DISCOLOURED [None]
  - FREQUENT BOWEL MOVEMENTS [None]
  - GASTROINTESTINAL DISORDER [None]
  - HEPATOTOXICITY [None]
  - WEIGHT DECREASED [None]
